FAERS Safety Report 23447163 (Version 7)
Quarter: 2025Q3

REPORT INFORMATION
  Report Type: Report from Study
  Country: EU (occurrence: EU)
  Receive Date: 20240126
  Receipt Date: 20250925
  Transmission Date: 20251020
  Serious: Yes (Hospitalization, Other)
  Sender: TAKEDA
  Company Number: EU-TAKEDA-2023TUS115298

PATIENT
  Age: 56 Year
  Sex: Female
  Weight: 56 kg

DRUGS (11)
  1. VELAGLUCERASE ALFA [Suspect]
     Active Substance: VELAGLUCERASE ALFA
     Indication: Gaucher^s disease
     Dosage: 60 INTERNATIONAL UNIT/ KILOGRAM, Q2WEEKS
     Dates: start: 20111222, end: 20130320
  2. VELAGLUCERASE ALFA [Suspect]
     Active Substance: VELAGLUCERASE ALFA
     Dosage: 53 INTERNATIONAL UNIT/ KILOGRAM, Q2WEEKS
     Dates: start: 20130403, end: 20130722
  3. VELAGLUCERASE ALFA [Suspect]
     Active Substance: VELAGLUCERASE ALFA
     Dosage: 53 INTERNATIONAL UNIT/ KILOGRAM, Q2WEEKS
     Dates: start: 20140909, end: 20190411
  4. VELAGLUCERASE ALFA [Suspect]
     Active Substance: VELAGLUCERASE ALFA
     Dosage: 60 INTERNATIONAL UNIT/ KILOGRAM, Q2WEEKS
     Dates: start: 20201211, end: 20210723
  5. VELAGLUCERASE ALFA [Suspect]
     Active Substance: VELAGLUCERASE ALFA
     Dosage: 42 INTERNATIONAL UNIT/ KILOGRAM, Q2WEEKS
     Dates: start: 20220513, end: 20231223
  6. VELAGLUCERASE ALFA [Suspect]
     Active Substance: VELAGLUCERASE ALFA
     Dosage: 42 INTERNATIONAL UNIT/ KILOGRAM, Q2WEEKS
     Dates: start: 20240927, end: 20250211
  7. DOLIPRANE [Concomitant]
     Active Substance: ACETAMINOPHEN
     Indication: Analgesic therapy
     Dosage: 1 GRAM, QID
  8. CHOLECALCIFEROL [Concomitant]
     Active Substance: CHOLECALCIFEROL
     Indication: Hypovitaminosis
     Dosage: 100000 INTERNATIONAL UNIT, Q3MONTHS
     Dates: start: 2015
  9. CHOLECALCIFEROL [Concomitant]
     Active Substance: CHOLECALCIFEROL
     Dosage: UNK UNK, SINGLE
     Dates: start: 20210710, end: 20210723
  10. LIDOCAINE [Concomitant]
     Active Substance: LIDOCAINE
     Indication: Pain
     Dosage: UNK UNK, QD
     Route: 061
     Dates: start: 20160602
  11. DIETARY SUPPLEMENT [Concomitant]
     Active Substance: DIETARY SUPPLEMENT
     Indication: Nutritional supplementation

REACTIONS (2)
  - Tendon disorder [Recovering/Resolving]
  - Vascular device infection [Recovered/Resolved]

NARRATIVE: CASE EVENT DATE: 20220801
